FAERS Safety Report 20235661 (Version 2)
Quarter: 2022Q1

REPORT INFORMATION
  Report Type: Report from Study
  Country: GB (occurrence: GB)
  Receive Date: 20211228
  Receipt Date: 20220110
  Transmission Date: 20220423
  Serious: Yes (Other)
  Sender: FDA-Public Use
  Company Number: GB-ABBVIE-21K-167-4212653-00

PATIENT
  Sex: Male

DRUGS (3)
  1. CARBIDOPA\LEVODOPA [Suspect]
     Active Substance: CARBIDOPA\LEVODOPA
     Indication: Parkinson^s disease
     Dosage: MORNING DOSE: 10.0MLS ,CONTINUOUS DOSE: 3.0MLS
     Route: 050
     Dates: end: 20211216
  2. CARBIDOPA\LEVODOPA [Suspect]
     Active Substance: CARBIDOPA\LEVODOPA
     Dosage: MORNING DOSE: 9.8 MLS ,CONTINUOUS DOSE: 2.8 MLS
     Route: 050
     Dates: start: 20211216, end: 202112
  3. CARBIDOPA\LEVODOPA [Suspect]
     Active Substance: CARBIDOPA\LEVODOPA
     Dosage: DOSE INCREASED; DUODOPA 20MG/5MG
     Route: 050
     Dates: start: 202112, end: 20220104

REACTIONS (7)
  - Presyncope [Unknown]
  - Device issue [Unknown]
  - Dry mouth [Unknown]
  - Neck pain [Recovered/Resolved]
  - Adverse drug reaction [Unknown]
  - Drug ineffective [Unknown]
  - Therapeutic product effect incomplete [Unknown]
